FAERS Safety Report 7928166-7 (Version None)
Quarter: 2011Q4

REPORT INFORMATION
  Report Type: 
  Country: None (occurrence: None)
  Receive Date: 20111118
  Receipt Date: 20111114
  Transmission Date: 20120403
  Serious: Yes (Other)
  Sender: FDA-Public Use
  Company Number: NL-ROCHE-1005418

PATIENT
  Sex: Female
  Weight: 84.7 kg

DRUGS (6)
  1. PEGINTERFERON ALFA-2A [Suspect]
     Indication: HEPATITIS C
     Dosage: DATE OF LAST DOSE PRIOR TO SAE-26-SEP-2011
     Route: 058
     Dates: start: 20110919
  2. COPEGUS [Suspect]
     Indication: HEPATITIS C
     Dosage: DATE OF LAST DOSE PRIOR TO SAE- 03-OCT-2011
     Route: 048
     Dates: start: 20110919
  3. CITALOPRAM HYDROBROMIDE [Concomitant]
     Dates: start: 20100101
  4. SEROQUEL [Concomitant]
     Dates: start: 20100101
  5. DEPAKENE [Concomitant]
     Dates: start: 20100101
  6. NEORECORMON [Suspect]
     Indication: HEPATITIS C
     Dosage: DOSE : 30,000 IU/ML
     Route: 058
     Dates: start: 20111103

REACTIONS (1)
  - PANCYTOPENIA [None]
